FAERS Safety Report 8559704-1 (Version None)
Quarter: 2012Q3

REPORT INFORMATION
  Report Type: 
  Country: None (occurrence: None)
  Receive Date: 20120727
  Receipt Date: 20120727
  Transmission Date: 20120928
  Serious: Yes (Hospitalization)
  Sender: FDA-Public Use
  Company Number: None

PATIENT
  Age: 85 Year
  Sex: Male
  Weight: 61.6892 kg

DRUGS (26)
  1. ASPIRIN [Suspect]
  2. SALIVA [Concomitant]
  3. QUETIAPINE [Concomitant]
  4. TRIAMCINOLONE [Concomitant]
  5. FINASTERIDE [Concomitant]
  6. RANITIDINE [Concomitant]
  7. CALCIUM MAGNESIUM ZINC [Concomitant]
  8. AZELASTINE HCL [Concomitant]
  9. WARFARIN SODIUM [Suspect]
     Indication: PULMONARY EMBOLISM
     Dosage: 2.5MG/ DAILY/ PO CHRONIC
     Route: 048
  10. HYPOTEARS DDPF [Concomitant]
  11. CANDESARTAN CILEXETIL [Concomitant]
  12. VITAMIN-MINERAL COMPOUND TAB [Concomitant]
  13. VIT D3 [Concomitant]
  14. TIMOLOL MALEATE [Concomitant]
  15. ZINC SULFATE [Concomitant]
  16. ZINC OXIDE [Concomitant]
  17. DIPYRIDAMOLE [Suspect]
     Indication: PULMONARY EMBOLISM
     Dosage: 1 CAPSULE BID PO CHRONIC
     Route: 048
  18. AMLODIPINE [Concomitant]
  19. ASCARBIC ACID [Concomitant]
  20. TAMSULOSIN HCL [Concomitant]
  21. WELLBUTRIN SR [Concomitant]
  22. M.V.I. [Concomitant]
  23. PREDNISONE [Concomitant]
  24. SIMETHICONE [Concomitant]
  25. HALOPERIDOL [Concomitant]
  26. LEVONORGESTREL AND ETHINYL ESTRADIOL [Concomitant]

REACTIONS (3)
  - SUBDURAL HAEMATOMA [None]
  - SUBARACHNOID HAEMORRHAGE [None]
  - ASTHENIA [None]
